FAERS Safety Report 21066137 (Version 1)
Quarter: 2022Q3

REPORT INFORMATION
  Report Type: Spontaneous
  Country: US (occurrence: US)
  Receive Date: 20220711
  Receipt Date: 20220711
  Transmission Date: 20221026
  Serious: No
  Sender: FDA-Public Use
  Company Number: US-INTRA-CELLULAR THERAPIES, INC.-2022ICT00386

PATIENT
  Age: 54 Year
  Sex: Female
  Weight: 133.79 kg

DRUGS (15)
  1. CAPLYTA [Suspect]
     Active Substance: LUMATEPERONE
     Indication: Schizophrenia
     Dosage: 42 MG, 1X/DAY IN THE MORNING
     Route: 048
     Dates: start: 20220318, end: 20220318
  2. CAPLYTA [Suspect]
     Active Substance: LUMATEPERONE
     Indication: Schizoaffective disorder
     Dosage: 42 MG, 1X/DAY IN THE MORNING
     Route: 048
     Dates: start: 20220418, end: 20220418
  3. CAPLYTA [Suspect]
     Active Substance: LUMATEPERONE
     Indication: Bipolar I disorder
     Dosage: 42 MG, 1X/DAY IN THE MORNING
     Route: 048
     Dates: start: 20220420, end: 202204
  4. LEVOTHYROXINE [Concomitant]
     Active Substance: LEVOTHYROXINE
  5. BAYER ASPIRIN [Concomitant]
     Active Substance: ASPIRIN
  6. PIOGLITAZONE [Concomitant]
     Active Substance: PIOGLITAZONE
  7. LITHIUM [Concomitant]
     Active Substance: LITHIUM
  8. VITAMIN D [Concomitant]
     Active Substance: VITAMIN D NOS
  9. BENZTROPINE [Concomitant]
     Active Substance: BENZTROPINE
  10. METFORMIN [Concomitant]
     Active Substance: METFORMIN HYDROCHLORIDE
  11. PROPRANOLOL [Concomitant]
     Active Substance: PROPRANOLOL HYDROCHLORIDE
  12. TOPIRAMATE [Concomitant]
     Active Substance: TOPIRAMATE
  13. ATORVASTATIN [Concomitant]
     Active Substance: ATORVASTATIN
  14. QUETIAPINE [Concomitant]
     Active Substance: QUETIAPINE
  15. LEVOMEFOLIC ACID [Concomitant]
     Active Substance: LEVOMEFOLIC ACID

REACTIONS (2)
  - Chills [Recovered/Resolved]
  - Fatigue [Recovered/Resolved]

NARRATIVE: CASE EVENT DATE: 20220318
